FAERS Safety Report 10067969 (Version 1)
Quarter: 2014Q2

REPORT INFORMATION
  Report Type: Spontaneous
  Country: NO (occurrence: NO)
  Receive Date: 20140409
  Receipt Date: 20140409
  Transmission Date: 20141212
  Serious: Yes (Other)
  Sender: FDA-Public Use
  Company Number: NO-PFIZER INC-2014097683

PATIENT
  Age: 39 Year
  Sex: Female

DRUGS (2)
  1. NEURONTIN [Suspect]
     Indication: PAIN
     Dosage: 600 MG, 3X/DAY
     Route: 048
     Dates: start: 20110107, end: 20121215
  2. NEURONTIN [Suspect]
     Dosage: UNK
     Route: 048

REACTIONS (7)
  - Suicidal ideation [Recovered/Resolved]
  - Dissociation [Recovered/Resolved]
  - Derealisation [Recovered/Resolved]
  - Contusion [Recovered/Resolved]
  - Muscle twitching [Recovered/Resolved with Sequelae]
  - Haematoma [Unknown]
  - Von Willebrand^s factor antigen decreased [Unknown]
